FAERS Safety Report 9335163 (Version 1)
Quarter: 2013Q2

REPORT INFORMATION
  Report Type: Report from Study
  Country: PL (occurrence: PL)
  Receive Date: 20130606
  Receipt Date: 20130606
  Transmission Date: 20140414
  Serious: Yes (Other)
  Sender: FDA-Public Use
  Company Number: PL-BAXTER-2013BAX020496

PATIENT
  Sex: Male

DRUGS (1)
  1. FEIBA NF [Suspect]
     Indication: PROPHYLAXIS
     Route: 042
     Dates: start: 2008, end: 2010

REACTIONS (1)
  - Drug ineffective [Not Recovered/Not Resolved]
